FAERS Safety Report 4587080-8 (Version None)
Quarter: 2005Q1

REPORT INFORMATION
  Report Type: 
  Country: None (occurrence: None)
  Receive Date: 20050214
  Receipt Date: 20050127
  Transmission Date: 20050727
  Serious: Yes (Other)
  Sender: FDA-Public Use
  Company Number: MEDI-0002791

PATIENT
  Age: 16 Month
  Sex: Female

DRUGS (6)
  1. SYNAGIS [Suspect]
     Indication: ANTIVIRAL PROPHYLAXIS
     Dosage: SEE IMAGE
     Route: 030
     Dates: start: 20041103, end: 20041220
  2. SYNAGIS [Suspect]
     Indication: ANTIVIRAL PROPHYLAXIS
     Dosage: SEE IMAGE
     Route: 030
     Dates: start: 20050119, end: 20050119
  3. SYNAGIS [Suspect]
     Indication: ANTIVIRAL PROPHYLAXIS
     Dosage: SEE IMAGE
     Route: 030
     Dates: start: 20041125
  4. ........ [Concomitant]
  5. SYNAGIS [Suspect]
     Dates: start: 20041125
  6. SYNAGIS [Suspect]
     Dates: start: 20050119

REACTIONS (7)
  - HEART RATE INCREASED [None]
  - IRRITABILITY [None]
  - LETHARGY [None]
  - NASOPHARYNGITIS [None]
  - POST PROCEDURAL COMPLICATION [None]
  - PRODUCTIVE COUGH [None]
  - TREMOR [None]
